FAERS Safety Report 5421430-5 (Version None)
Quarter: 2007Q3

REPORT INFORMATION
  Report Type: 
  Country: None (occurrence: None)
  Receive Date: 20070821
  Receipt Date: 20070802
  Transmission Date: 20080115
  Serious: No
  Sender: FDA-Public Use
  Company Number: US-BOEHRINGER INGELHEIM PHARMACEUTICALS, INC.-2007-BP-17555BP

PATIENT
  Sex: Female

DRUGS (11)
  1. MIRAPEX [Suspect]
     Indication: RESTLESS LEGS SYNDROME
     Route: 048
     Dates: start: 20070412, end: 20070413
  2. MECLIZINE [Concomitant]
  3. LISINOPRIL [Concomitant]
  4. SPIRONOLACTONE [Concomitant]
  5. LASIX [Concomitant]
  6. PROVENTIL [Concomitant]
  7. ATENOLOL [Concomitant]
  8. PREMARIN VAGINAL [Concomitant]
  9. ASPIRIN [Concomitant]
  10. XANAX [Concomitant]
  11. FOSAMAX [Concomitant]

REACTIONS (1)
  - DIZZINESS [None]
